FAERS Safety Report 23715533 (Version 2)
Quarter: 2024Q2

REPORT INFORMATION
  Report Type: Spontaneous
  Country: DE (occurrence: DE)
  Receive Date: 20240407
  Receipt Date: 20240621
  Transmission Date: 20240715
  Serious: Yes (Other)
  Sender: FDA-Public Use
  Company Number: DE-JNJFOC-20240274091

PATIENT
  Sex: Male

DRUGS (1)
  1. TALVEY [Suspect]
     Active Substance: TALQUETAMAB-TGVS
     Indication: Plasma cell myeloma
     Route: 065

REACTIONS (3)
  - T-cell lymphoma [Unknown]
  - Urticaria [Unknown]
  - Granuloma [Unknown]
